FAERS Safety Report 7239435-0 (Version None)
Quarter: 2011Q1

REPORT INFORMATION
  Report Type: 
  Country: None (occurrence: None)
  Receive Date: 20110121
  Receipt Date: 20110112
  Transmission Date: 20110831
  Serious: Yes (Hospitalization, Other)
  Sender: FDA-Public Use
  Company Number: US-ASTRAZENECA-2010SE08874

PATIENT
  Age: 7 Year
  Sex: Female

DRUGS (12)
  1. LASIX [Concomitant]
  2. PREVACID [Concomitant]
  3. ZONEGRAN [Concomitant]
  4. POLY VI SOL [Concomitant]
  5. REGLAN [Concomitant]
  6. CLARITIN [Concomitant]
  7. TOPROL-XL [Suspect]
     Route: 048
     Dates: start: 20051218, end: 20051218
  8. SODIUM FLUORIDE [Concomitant]
  9. ENALAPRIL [Concomitant]
  10. TOPAMAX [Concomitant]
     Indication: CONVULSION
  11. TOPROL-XL [Suspect]
     Route: 048
     Dates: start: 20051219, end: 20051219
  12. PULMICORT [Concomitant]

REACTIONS (11)
  - HEPATOMEGALY [None]
  - OVERDOSE [None]
  - WRONG TECHNIQUE IN DRUG USAGE PROCESS [None]
  - WRONG DRUG ADMINISTERED [None]
  - CONVULSION [None]
  - HALLUCINATION [None]
  - CRYING [None]
  - GRAND MAL CONVULSION [None]
  - BLOOD PRESSURE DECREASED [None]
  - UNRESPONSIVE TO STIMULI [None]
  - RENAL DISORDER [None]
